FAERS Safety Report 12204226 (Version 1)
Quarter: 2016Q1

REPORT INFORMATION
  Report Type: Spontaneous
  Country: US (occurrence: None)
  Receive Date: 20160322
  Receipt Date: 20160322
  Transmission Date: 20160526
  Serious: No
  Sender: FDA-Public Use
  Company Number: None

PATIENT
  Age: 57 Year
  Sex: Male

DRUGS (1)
  1. HUMIRA [Suspect]
     Active Substance: ADALIMUMAB
     Indication: COLITIS ULCERATIVE
     Dosage: 40 MF PFS EVERY OTEHR WK SUB Q
     Route: 058
     Dates: start: 20160319

REACTIONS (1)
  - Contusion [None]

NARRATIVE: CASE EVENT DATE: 20160319
